FAERS Safety Report 5463652-3 (Version None)
Quarter: 2007Q3

REPORT INFORMATION
  Report Type: 
  Country: None (occurrence: None)
  Receive Date: 20070920
  Receipt Date: 20070911
  Transmission Date: 20080115
  Serious: Yes (Hospitalization)
  Sender: FDA-Public Use
  Company Number: FR-ABBOTT-07P-056-0416666-00

PATIENT
  Sex: Male

DRUGS (1)
  1. ZECLAR [Suspect]
     Indication: LUNG DISORDER
     Route: 048
     Dates: start: 20070810, end: 20070817

REACTIONS (3)
  - DIARRHOEA [None]
  - PYREXIA [None]
  - WEIGHT DECREASED [None]
